FAERS Safety Report 4589684-5 (Version None)
Quarter: 2005Q1

REPORT INFORMATION
  Report Type: 
  Country: None (occurrence: None)
  Receive Date: 20050217
  Receipt Date: 20050204
  Transmission Date: 20050727
  Serious: Yes (Hospitalization)
  Sender: FDA-Public Use
  Company Number: 200500967

PATIENT
  Age: 76 Year
  Sex: Female

DRUGS (5)
  1. ALESION (EPINASTINE) [Suspect]
     Indication: DERMATITIS ALLERGIC
     Dosage: 20 MG QD PO
     Route: 048
     Dates: start: 20050105, end: 20050128
  2. SHAKUYAKU-KANZO-TO [Concomitant]
  3. PAXIL [Concomitant]
  4. RABEPRAZOLE SODIUM [Concomitant]
  5. CELESTAMINE TAB [Concomitant]

REACTIONS (3)
  - NAUSEA [None]
  - NEUTROPENIA [None]
  - VOMITING [None]
